FAERS Safety Report 8785863 (Version 1)
Quarter: 2012Q4

REPORT INFORMATION
  Report Type: 
  Country: GB (occurrence: GB)
  Receive Date: 20120914
  Receipt Date: 20120914
  Transmission Date: 20130627
  Serious: Yes (Hospitalization)
  Sender: FDA-Public Use
  Company Number: PHFR2012GB004929

PATIENT
  Age: 76 Year
  Sex: Male
  Weight: 68 kg

DRUGS (10)
  1. RIVASTIGMINE [Suspect]
     Dosage: 2 DF, daily
     Route: 048
  2. ASPIRIN [Suspect]
     Indication: CARDIOVASCULAR EVENT PROPHYLAXIS
     Dosage: 1 DF, daily
     Route: 048
     Dates: end: 20120825
  3. CALCIUM CARBONATE W/COLECALCIFEROL [Concomitant]
     Dosage: 2 DF, daily
  4. CO-BENELDOPA [Concomitant]
     Dosage: 4 DF, daily
  5. DOCUSATE [Concomitant]
     Dosage: 2 DF, daily
  6. DOMPERIDONE [Concomitant]
     Dosage: 3 DF, daily
  7. CO-CODAMOL [Concomitant]
     Dosage: 4 DF, daily
  8. FLUDROCORTISONE [Concomitant]
     Dosage: 1 DF, daily
  9. NITROFURANTOIN [Concomitant]
     Dosage: 1 DF, daily
  10. VENLAFAXINE [Concomitant]
     Dosage: 1 DF, UNK

REACTIONS (4)
  - Blood pressure decreased [Recovered/Resolved]
  - Blood urea increased [Recovered/Resolved]
  - Upper gastrointestinal haemorrhage [Recovered/Resolved]
  - Melaena [Recovered/Resolved]
